FAERS Safety Report 5978862-6 (Version None)
Quarter: 2008Q4

REPORT INFORMATION
  Report Type: 
  Country: None (occurrence: None)
  Receive Date: 20081126
  Receipt Date: 20081113
  Transmission Date: 20090506
  Serious: Yes (Other)
  Sender: FDA-Public Use
  Company Number: 100#01#2008-05867

PATIENT
  Age: 65 Year
  Sex: Female

DRUGS (1)
  1. CARBAMAZEPINE [Suspect]
     Indication: TRIGEMINAL NEURALGIA
     Dosage: 200 MG TWICE DAILY
     Route: 048
     Dates: start: 20081011, end: 20081111

REACTIONS (1)
  - BLISTER [None]
